FAERS Safety Report 15962947 (Version 2)
Quarter: 2019Q3

REPORT INFORMATION
  Report Type: Spontaneous
  Country: DE (occurrence: DE)
  Receive Date: 20190214
  Receipt Date: 20190710
  Transmission Date: 20191004
  Serious: Yes (Other)
  Sender: FDA-Public Use
  Company Number: DE-SA-2019SA037344

PATIENT
  Age: 22 Year
  Sex: Male

DRUGS (7)
  1. ALPROLIX [Suspect]
     Active Substance: EFTRENONACOG ALFA
     Dosage: 4500 IU, QD
     Route: 042
     Dates: start: 20160912, end: 20160914
  2. ALPROLIX [Suspect]
     Active Substance: EFTRENONACOG ALFA
     Dosage: 4500 IU, QW
     Route: 042
     Dates: start: 201702
  3. ALPROLIX [Suspect]
     Active Substance: EFTRENONACOG ALFA
     Dosage: 4500 IU
     Route: 042
     Dates: start: 20160808
  4. ALPROLIX [Suspect]
     Active Substance: EFTRENONACOG ALFA
     Indication: FACTOR IX DEFICIENCY
     Dosage: UNK
     Route: 042
     Dates: start: 20160913, end: 20170216
  5. ALPROLIX [Suspect]
     Active Substance: EFTRENONACOG ALFA
     Dosage: 1000 IU, QOD
     Route: 042
     Dates: start: 20161022, end: 201702
  6. ALPROLIX [Suspect]
     Active Substance: EFTRENONACOG ALFA
     Dosage: 4500 IU, QOD
     Route: 042
     Dates: start: 20160916, end: 20160922
  7. ALPROLIX [Suspect]
     Active Substance: EFTRENONACOG ALFA
     Dosage: 2000 IU, QOD
     Route: 042
     Dates: start: 20160924, end: 20161020

REACTIONS (6)
  - Joint effusion [Recovered/Resolved]
  - Joint instability [Recovered/Resolved]
  - Haemarthrosis [Recovered/Resolved]
  - Joint swelling [Recovered/Resolved]
  - Ligament rupture [Recovered/Resolved]
  - Bone contusion [Recovered/Resolved]

NARRATIVE: CASE EVENT DATE: 20160831
